FAERS Safety Report 5745688-8 (Version None)
Quarter: 2008Q2

REPORT INFORMATION
  Report Type: 
  Country: None (occurrence: None)
  Receive Date: 20080521
  Receipt Date: 20080519
  Transmission Date: 20081010
  Serious: Yes (Life-Threatening, Hospitalization)
  Sender: FDA-Public Use
  Company Number: JP-BOEHRINGER INGELHEIM GMBH, GERMANY-2008-BP-07816RO

PATIENT
  Age: 2 Year
  Sex: Female

DRUGS (7)
  1. DEXAMETHASONE TAB [Suspect]
     Indication: HISTIOCYTOSIS HAEMATOPHAGIC
  2. METHOTREXATE [Suspect]
     Indication: HISTIOCYTOSIS HAEMATOPHAGIC
  3. CYCLOSPORINE [Suspect]
     Indication: HISTIOCYTOSIS HAEMATOPHAGIC
  4. ETOPOSIDE [Suspect]
     Indication: HISTIOCYTOSIS HAEMATOPHAGIC
  5. PLASMA EXCHANGE [Suspect]
     Indication: HISTIOCYTOSIS HAEMATOPHAGIC
  6. IMMUNE GLOBULIN INTRAVENOUS (HUMAN) [Suspect]
     Indication: HISTIOCYTOSIS HAEMATOPHAGIC
  7. METHYLPREDNISOLONE [Suspect]
     Indication: HISTIOCYTOSIS HAEMATOPHAGIC

REACTIONS (1)
  - AXONAL NEUROPATHY [None]
